FAERS Safety Report 21534078 (Version 1)
Quarter: 2022Q4

REPORT INFORMATION
  Report Type: Spontaneous
  Country: US (occurrence: US)
  Receive Date: 20221101
  Receipt Date: 20221101
  Transmission Date: 20230113
  Serious: No
  Sender: FDA-Public Use
  Company Number: US-PARATEK PHARMACEUTICALS, INC.-2022PTK00164

PATIENT
  Sex: Female
  Weight: 40.816 kg

DRUGS (3)
  1. NUZYRA [Suspect]
     Active Substance: OMADACYCLINE
     Indication: Mycobacterium avium complex infection
     Dosage: 150 MG, 1X/DAY
     Route: 048
     Dates: start: 2022, end: 202205
  2. ARIKAYCE [Concomitant]
     Active Substance: AMIKACIN
     Dosage: UNK
  3. LINEZOLID [Concomitant]
     Active Substance: LINEZOLID

REACTIONS (12)
  - Asthenia [Recovering/Resolving]
  - Feeling abnormal [Unknown]
  - Fear of death [Unknown]
  - Hypophagia [Recovering/Resolving]
  - Abdominal discomfort [Recovering/Resolving]
  - Decreased appetite [Recovering/Resolving]
  - Weight decreased [Not Recovered/Not Resolved]
  - Fatigue [Recovering/Resolving]
  - Vomiting [Recovering/Resolving]
  - Nausea [Recovering/Resolving]
  - Unevaluable event [Recovered/Resolved]
  - Off label use [Recovered/Resolved]

NARRATIVE: CASE EVENT DATE: 20220101
